FAERS Safety Report 10251758 (Version 1)
Quarter: 2014Q2

REPORT INFORMATION
  Report Type: Spontaneous
  Country: US (occurrence: US)
  Receive Date: 20140623
  Receipt Date: 20140623
  Transmission Date: 20141212
  Serious: No
  Sender: FDA-Public Use
  Company Number: US-BIOGENIDEC-2014BI057623

PATIENT
  Age: 59 Year
  Sex: Female

DRUGS (3)
  1. TECFIDERA [Suspect]
     Indication: RELAPSING-REMITTING MULTIPLE SCLEROSIS
     Route: 048
     Dates: start: 201306
  2. DIAZEPAM [Concomitant]
  3. ATELVIA [Concomitant]

REACTIONS (10)
  - Vitamin B complex deficiency [Not Recovered/Not Resolved]
  - Vitamin D increased [Not Recovered/Not Resolved]
  - Insomnia [Not Recovered/Not Resolved]
  - Panic reaction [Not Recovered/Not Resolved]
  - Memory impairment [Not Recovered/Not Resolved]
  - Vomiting [Recovered/Resolved]
  - Retching [Not Recovered/Not Resolved]
  - Abdominal pain upper [Not Recovered/Not Resolved]
  - White blood cell count decreased [Unknown]
  - Diarrhoea [Not Recovered/Not Resolved]
